FAERS Safety Report 9952230 (Version 3)
Quarter: 2014Q1

REPORT INFORMATION
  Report Type: Spontaneous
  Country: JP (occurrence: JP)
  Receive Date: 20140304
  Receipt Date: 20140331
  Transmission Date: 20141002
  Serious: Yes (Death, Disabling, Other)
  Sender: FDA-Public Use
  Company Number: JP-PFIZER INC-2014059573

PATIENT
  Age: 67 Year
  Sex: Male
  Weight: 61 kg

DRUGS (21)
  1. CAMPTO [Suspect]
     Indication: PANCREATIC CARCINOMA
     Dosage: 300 MG, ONCE A DAY
     Route: 041
     Dates: start: 20140129, end: 20140129
  2. CAMPTO [Suspect]
     Dosage: 240 MG, ONCE A DAY
     Route: 041
     Dates: start: 20140213, end: 20140213
  3. ELPLAT [Suspect]
     Indication: PANCREATIC CARCINOMA
     Dosage: 145 MG, ONCE A DAY
     Route: 041
     Dates: start: 20140129, end: 20140129
  4. ELPLAT [Suspect]
     Dosage: 100 MG, ONCE A DAY
     Route: 041
     Dates: start: 20140213, end: 20140213
  5. 5-FU [Suspect]
     Indication: PANCREATIC CARCINOMA
     Dosage: 675 MG, ONCE A DAY
     Route: 040
     Dates: start: 20140129, end: 20140129
  6. 5-FU [Suspect]
     Dosage: 4100 MG, ONCE IN 2 DAYS
     Route: 041
     Dates: start: 20140129, end: 20140129
  7. 5-FU [Suspect]
     Dosage: 2800 MG, ONCE IN 2 DAYS
     Route: 041
     Dates: start: 20140213, end: 20140213
  8. LEVOFOLINATE [Concomitant]
     Dosage: 350 MG, UNK
     Route: 042
     Dates: start: 20140129, end: 20140213
  9. DECADRON [Concomitant]
     Dosage: UNK
     Dates: start: 20140129, end: 20140213
  10. GRANISETRON [Concomitant]
     Dosage: UNK
     Dates: start: 20140129, end: 20140213
  11. EMEND [Concomitant]
     Dosage: UNK
     Dates: start: 20140129, end: 20140215
  12. FAMOTIDINE [Concomitant]
     Dosage: UNK
     Dates: start: 20140129
  13. PELTAZON [Concomitant]
     Dosage: UNK
     Dates: start: 20140129
  14. LOXOPROFEN NA [Concomitant]
     Dosage: UNK
     Dates: start: 20140129, end: 20140210
  15. HACHIAZULE [Concomitant]
     Dosage: UNK
     Dates: start: 20140203
  16. MUCOSTA [Concomitant]
     Dosage: UNK
     Dates: start: 20140203
  17. CISDYNE [Concomitant]
     Dosage: UNK
     Dates: start: 20140205
  18. DESPA [Concomitant]
     Dosage: UNK
     Dates: start: 20140207
  19. VOLTAREN SR [Concomitant]
     Dosage: UNK
     Dates: start: 20140210
  20. NEU-UP [Concomitant]
     Dosage: UNK
     Dates: start: 20140210, end: 20140212
  21. HUMURIN R [Concomitant]
     Dosage: UNK
     Dates: start: 20140128

REACTIONS (7)
  - Gastrointestinal haemorrhage [Fatal]
  - Tumour lysis syndrome [Fatal]
  - Disease progression [Fatal]
  - Pancreatic carcinoma [Fatal]
  - Neutrophil count decreased [Recovered/Resolved]
  - Stomatitis [Recovered/Resolved]
  - White blood cell count decreased [Recovered/Resolved]
